FAERS Safety Report 6287290-8 (Version None)
Quarter: 2009Q3

REPORT INFORMATION
  Report Type: 
  Country: None (occurrence: None)
  Receive Date: 20090728
  Receipt Date: 20090722
  Transmission Date: 20100115
  Serious: Yes (Hospitalization)
  Sender: FDA-Public Use
  Company Number: PHHO2009HK08707

PATIENT
  Sex: Male
  Weight: 63.9 kg

DRUGS (7)
  1. RAD 666 RAD+TAB [Suspect]
     Indication: RENAL CELL CARCINOMA
     Dosage: 10 MG, QD
     Route: 048
     Dates: start: 20090619, end: 20090709
  2. BEVACIZUMAB [Suspect]
     Indication: RENAL CELL CARCINOMA
     Dosage: 650 MG/EVERY 2 WEEKS
     Route: 042
     Dates: start: 20090619, end: 20090709
  3. TRIAMTERENE [Concomitant]
     Indication: HYPERTENSION
     Dosage: UNK
  4. RESAPIN [Concomitant]
     Indication: HYPERTENSION
     Dosage: UNK
  5. DIHYDRALAZINE [Concomitant]
     Indication: HYPERTENSION
  6. HYDROCHLOROTHIAZIDE [Concomitant]
     Indication: HYPERTENSION
     Dosage: UNK
  7. THYMOL [Concomitant]
     Indication: STOMATITIS

REACTIONS (8)
  - ANAL ABSCESS [None]
  - BACK PAIN [None]
  - CHILLS [None]
  - DYSURIA [None]
  - ESCHERICHIA INFECTION [None]
  - INCISIONAL DRAINAGE [None]
  - PYREXIA [None]
  - STREPTOCOCCAL INFECTION [None]
